FAERS Safety Report 5828703-2 (Version None)
Quarter: 2008Q3

REPORT INFORMATION
  Report Type: 
  Country: None (occurrence: None)
  Receive Date: 20080731
  Receipt Date: 20080725
  Transmission Date: 20090109
  Serious: Yes (Death)
  Sender: FDA-Public Use
  Company Number: DK-ASTRAZENECA-2008SE03645

PATIENT
  Age: 30547 Day
  Sex: Male

DRUGS (5)
  1. ESOPRAL [Suspect]
     Indication: HYPERTENSION
  2. PRAVASTATIN [Suspect]
     Indication: HYPERCHOLESTEROLAEMIA
  3. CENTYL MED KALIUMKLORID [Concomitant]
     Route: 048
  4. SOTALOL HCL [Concomitant]
     Indication: HYPERTENSION
  5. MAGNYL ^DAK^ [Concomitant]
     Indication: THROMBOSIS PROPHYLAXIS
     Dosage: 100 MILLIGRAM(S)
     Route: 048

REACTIONS (1)
  - RHABDOMYOLYSIS [None]
